FAERS Safety Report 9273805 (Version 1)
Quarter: 2013Q2

REPORT INFORMATION
  Report Type: Spontaneous
  Country: US (occurrence: US)
  Receive Date: 20130506
  Receipt Date: 20130506
  Transmission Date: 20140414
  Serious: No
  Sender: FDA-Public Use
  Company Number: US-009507513-1305USA001530

PATIENT
  Age: 43 Year
  Sex: Female

DRUGS (3)
  1. SAPHRIS [Suspect]
     Indication: BIPOLAR I DISORDER
     Dosage: 5 MG, BID
     Route: 060
     Dates: start: 20130101
  2. SAPHRIS [Suspect]
     Dosage: 10 MG, BID
     Route: 060
  3. LORTAB [Concomitant]

REACTIONS (2)
  - Weight increased [Unknown]
  - Bipolar disorder [Unknown]
